FAERS Safety Report 8120434-1 (Version None)
Quarter: 2012Q1

REPORT INFORMATION
  Report Type: 
  Country: None (occurrence: None)
  Receive Date: 20120207
  Receipt Date: 20120125
  Transmission Date: 20120608
  Serious: Yes (Hospitalization, Disabling)
  Sender: FDA-Public Use
  Company Number: US-ELI_LILLY_AND_COMPANY-US201009002801

PATIENT
  Sex: Female
  Weight: 47.2 kg

DRUGS (3)
  1. FORTEO [Suspect]
     Indication: OSTEOPOROSIS
     Dosage: 20 UG, DAILY (1/D)
     Route: 058
     Dates: start: 20100428, end: 20100906
  2. FORTEO [Suspect]
     Dosage: 20 UG, QD (1/D)
     Route: 058
  3. FORTEO [Suspect]
     Dosage: 20 UG, QD (1/D)
     Route: 058

REACTIONS (12)
  - EATING DISORDER [None]
  - DIPLEGIA [None]
  - PATHOLOGICAL FRACTURE [None]
  - WEIGHT DECREASED [None]
  - KNEE ARTHROPLASTY [None]
  - DYSGEUSIA [None]
  - HYPOAESTHESIA [None]
  - MEDICAL DEVICE REMOVAL [None]
  - GAIT DISTURBANCE [None]
  - NERVE COMPRESSION [None]
  - DIARRHOEA [None]
  - NAUSEA [None]
